FAERS Safety Report 10378667 (Version 1)
Quarter: 2014Q3

REPORT INFORMATION
  Report Type: Spontaneous
  Country: FR (occurrence: FR)
  Receive Date: 20140812
  Receipt Date: 20140812
  Transmission Date: 20150326
  Serious: Yes (Hospitalization)
  Sender: FDA-Public Use
  Company Number: FR-009507513-1408FRA006387

PATIENT
  Age: 81 Year
  Sex: Female

DRUGS (8)
  1. LEVOTHYROX [Concomitant]
     Active Substance: LEVOTHYROXINE
  2. XAGRID [Concomitant]
     Active Substance: ANAGRELIDE HYDROCHLORIDE
  3. DAFALGAN CODEINE [Suspect]
     Active Substance: ACETAMINOPHEN\CODEINE PHOSPHATE
  4. PREVISCAN [Concomitant]
     Active Substance: FLUINDIONE
  5. ZOCOR [Suspect]
     Active Substance: SIMVASTATIN
     Route: 048
  6. IPERTEN [Concomitant]
     Active Substance: MANIDIPINE
  7. CORDARONE [Concomitant]
     Active Substance: AMIODARONE HYDROCHLORIDE
  8. FLECAINE [Concomitant]
     Active Substance: FLECAINIDE

REACTIONS (2)
  - Disorientation [Recovered/Resolved]
  - Constipation [Recovered/Resolved]

NARRATIVE: CASE EVENT DATE: 201405
